FAERS Safety Report 15542778 (Version 1)
Quarter: 2018Q4

REPORT INFORMATION
  Report Type: Spontaneous
  Country: US (occurrence: US)
  Receive Date: 20181023
  Receipt Date: 20181023
  Transmission Date: 20190205
  Serious: Yes (Death, Hospitalization, Other)
  Sender: FDA-Public Use
  Company Number: US-ACELLA PHARMACEUTICALS, LLC-2056888

PATIENT
  Age: 88 Year
  Sex: Female

DRUGS (7)
  1. BUSPIRONE [Suspect]
     Active Substance: BUSPIRONE HYDROCHLORIDE
  2. METOPROLOL. [Suspect]
     Active Substance: METOPROLOL
  3. VENLAFAXINE [Suspect]
     Active Substance: VENLAFAXINE HYDROCHLORIDE
  4. TRAZODONE [Suspect]
     Active Substance: TRAZODONE HYDROCHLORIDE
  5. LEVOTHYROXINE. [Suspect]
     Active Substance: LEVOTHYROXINE
  6. GABAPENTIN. [Suspect]
     Active Substance: GABAPENTIN
  7. MIRTAZAPINE. [Suspect]
     Active Substance: MIRTAZAPINE

REACTIONS (4)
  - Seizure [Fatal]
  - Pneumonia aspiration [Fatal]
  - Death [Fatal]
  - Sepsis [Fatal]
